FAERS Safety Report 6150740-1 (Version None)
Quarter: 2009Q2

REPORT INFORMATION
  Report Type: 
  Country: None (occurrence: None)
  Receive Date: 20090408
  Receipt Date: 20090324
  Transmission Date: 20091009
  Serious: Yes (Hospitalization, Other)
  Sender: FDA-Public Use
  Company Number: 2009S1002625

PATIENT
  Age: 54 Year
  Sex: Female

DRUGS (8)
  1. FLEET EDENAM (SODIUM PHOSPHATE) [Suspect]
     Indication: CONSTIPATION
     Dosage: 266 ML;TOTAL;RTL
     Route: 054
     Dates: start: 20090303, end: 20090303
  2. FENTANYL [Concomitant]
  3. ELAVIL [Concomitant]
  4. OXYCODONE HCL [Concomitant]
  5. CELEBREX [Concomitant]
  6. NEURONTIN [Concomitant]
  7. VESICARE /01735901/ [Concomitant]
  8. MEXILETINE HYDROCHLORIDE [Concomitant]

REACTIONS (1)
  - RENAL FAILURE [None]
